FAERS Safety Report 8043720-2 (Version None)
Quarter: 2012Q1

REPORT INFORMATION
  Report Type: 
  Country: None (occurrence: None)
  Receive Date: 20120113
  Receipt Date: 20120109
  Transmission Date: 20120608
  Serious: Yes (Death, Hospitalization, Other)
  Sender: FDA-Public Use
  Company Number: DE-BRISTOL-MYERS SQUIBB COMPANY-16036477

PATIENT
  Age: 49 Year
  Sex: Male

DRUGS (1)
  1. YERVOY [Suspect]
     Indication: MALIGNANT MELANOMA
     Dates: start: 20110823

REACTIONS (7)
  - CONSTIPATION [None]
  - BLOOD THYROID STIMULATING HORMONE INCREASED [None]
  - GENERAL PHYSICAL HEALTH DETERIORATION [None]
  - NEOPLASM MALIGNANT [None]
  - NEUTROPENIA [None]
  - DECREASED APPETITE [None]
  - THROMBOCYTOPENIA [None]
